FAERS Safety Report 4441371-X (Version None)
Quarter: 2004Q3

REPORT INFORMATION
  Report Type: 
  Country: None (occurrence: None)
  Receive Date: 20040728
  Receipt Date: 20040428
  Transmission Date: 20050211
  Serious: No
  Sender: FDA-Public Use
  Company Number: USA040466184

PATIENT
  Age: 34 Year
  Sex: Female

DRUGS (2)
  1. STRATTERA [Suspect]
     Indication: ATTENTION DEFICIT/HYPERACTIVITY DISORDER
     Dosage: 60 MG IN THE MORNING
     Dates: start: 20040201
  2. PAXIL [Concomitant]

REACTIONS (5)
  - HYPERVENTILATION [None]
  - NIGHTMARE [None]
  - PARAESTHESIA [None]
  - PERIPHERAL COLDNESS [None]
  - SCREAMING [None]
